FAERS Safety Report 10065378 (Version 1)
Quarter: 2014Q2

REPORT INFORMATION
  Report Type: Spontaneous
  Country: US (occurrence: US)
  Receive Date: 20140408
  Receipt Date: 20140408
  Transmission Date: 20141212
  Serious: Yes (Hospitalization)
  Sender: FDA-Public Use
  Company Number: US-GLAXOSMITHKLINE-A1067491A

PATIENT
  Age: 49 Year
  Sex: Male

DRUGS (4)
  1. ARIXTRA [Suspect]
     Indication: DEEP VEIN THROMBOSIS
     Dosage: 7.5MG PER DAY
     Route: 058
     Dates: start: 2011
  2. TRAMADOL [Concomitant]
  3. LISINOPRIL [Concomitant]
  4. PERCOCET [Concomitant]

REACTIONS (7)
  - Thrombosis [Recovering/Resolving]
  - Peripheral swelling [Recovering/Resolving]
  - Skin discolouration [Recovering/Resolving]
  - Pain in extremity [Recovering/Resolving]
  - Limb operation [Unknown]
  - May-Thurner syndrome [Unknown]
  - Chest pain [Not Recovered/Not Resolved]
